APPROVED DRUG PRODUCT: LEVOFLOXACIN IN DEXTROSE 5% IN PLASTIC CONTAINER
Active Ingredient: LEVOFLOXACIN
Strength: EQ 750MG/150ML (EQ 5MG/ML)
Dosage Form/Route: INJECTABLE;INJECTION
Application: A206908 | Product #003 | TE Code: AP
Applicant: GLAND PHARMA LTD
Approved: Dec 30, 2020 | RLD: No | RS: No | Type: RX